FAERS Safety Report 21330629 (Version 2)
Quarter: 2022Q3

REPORT INFORMATION
  Report Type: Spontaneous
  Country: None (occurrence: GB)
  Receive Date: 20220913
  Receipt Date: 20220919
  Transmission Date: 20221026
  Serious: Yes (Other)
  Sender: FDA-Public Use
  Company Number: GB-Ascend Therapeutics US, LLC-2132827

PATIENT
  Sex: Female

DRUGS (4)
  1. ESTROGEL [Suspect]
     Active Substance: ESTRADIOL
     Indication: Menopausal symptoms
     Route: 065
     Dates: end: 202208
  2. ESTROGEL [Suspect]
     Active Substance: ESTRADIOL
  3. ESTRADIOL [Suspect]
     Active Substance: ESTRADIOL
     Route: 065
     Dates: end: 202208
  4. ESTRADIOL [Suspect]
     Active Substance: ESTRADIOL
     Route: 065
     Dates: start: 202208

REACTIONS (8)
  - Suicidal ideation [Unknown]
  - Back pain [Unknown]
  - Vision blurred [Unknown]
  - Dry eye [Unknown]
  - Dry throat [Unknown]
  - Feeling abnormal [Unknown]
  - Insomnia [Unknown]
  - Drug ineffective [None]

NARRATIVE: CASE EVENT DATE: 20220801
